FAERS Safety Report 26125890 (Version 1)
Quarter: 2025Q4

REPORT INFORMATION
  Report Type: Spontaneous
  Country: US (occurrence: US)
  Receive Date: 20251205
  Receipt Date: 20251205
  Transmission Date: 20260118
  Serious: No
  Sender: ABBVIE
  Company Number: US-ABBVIE-6576333

PATIENT
  Sex: Female

DRUGS (3)
  1. LATISSE [Suspect]
     Active Substance: BIMATOPROST
     Indication: Product used for unknown indication
     Dosage: NIGHTLY
     Route: 061
  2. LATISSE [Suspect]
     Active Substance: BIMATOPROST
     Route: 061
  3. LATISSE [Suspect]
     Active Substance: BIMATOPROST
     Route: 061

REACTIONS (5)
  - Ocular hyperaemia [Unknown]
  - Eye irritation [Unknown]
  - Dry eye [Unknown]
  - Eye swelling [Unknown]
  - Eye pain [Unknown]
